FAERS Safety Report 23365360 (Version 3)
Quarter: 2024Q3

REPORT INFORMATION
  Report Type: Spontaneous
  Country: US (occurrence: US)
  Receive Date: 20240104
  Receipt Date: 20240724
  Transmission Date: 20241017
  Serious: Yes (Other)
  Sender: BRISTOL MYERS SQUIBB
  Company Number: US-BRISTOL-MYERS SQUIBB COMPANY-2024-001669

PATIENT
  Age: 73 Year
  Sex: Female
  Weight: 88 kg

DRUGS (3)
  1. LENALIDOMIDE [Suspect]
     Active Substance: LENALIDOMIDE
     Indication: Bone marrow transplant
     Route: 048
     Dates: start: 20230601
  2. LENALIDOMIDE [Suspect]
     Active Substance: LENALIDOMIDE
     Indication: Plasma cell myeloma
     Route: 048
     Dates: start: 20240411
  3. BEET ROOT [Concomitant]
     Indication: Product used for unknown indication

REACTIONS (5)
  - Somnolence [Unknown]
  - Product dose omission issue [Unknown]
  - Urinary tract infection [Recovering/Resolving]
  - Nasopharyngitis [Recovering/Resolving]
  - Fatigue [Unknown]
